FAERS Safety Report 9672194 (Version 1)
Quarter: 2013Q4

REPORT INFORMATION
  Report Type: Spontaneous
  Country: NO (occurrence: NO)
  Receive Date: 20131106
  Receipt Date: 20131106
  Transmission Date: 20140711
  Serious: Yes (Death, Hospitalization)
  Sender: FDA-Public Use
  Company Number: NO-WATSON-2013-20202

PATIENT
  Sex: Female

DRUGS (3)
  1. STESOLID [Suspect]
     Indication: PRODUCT USED FOR UNKNOWN INDICATION
     Dosage: UNK
     Route: 065
  2. DUODOPA [Suspect]
     Indication: PRODUCT USED FOR UNKNOWN INDICATION
     Dosage: UNK
     Route: 065
  3. DIGITOXIN [Concomitant]
     Indication: PRODUCT USED FOR UNKNOWN INDICATION
     Dosage: UNK
     Route: 065

REACTIONS (7)
  - Respiratory arrest [Fatal]
  - Atrial fibrillation [Fatal]
  - Device dislocation [Fatal]
  - Weight decreased [Fatal]
  - Cardiovascular disorder [Unknown]
  - Drug level increased [Unknown]
  - Fluid intake reduced [Unknown]
